FAERS Safety Report 16751093 (Version 2)
Quarter: 2019Q3

REPORT INFORMATION
  Report Type: Spontaneous
  Country: US (occurrence: US)
  Receive Date: 20190828
  Receipt Date: 20190926
  Transmission Date: 20191005
  Serious: Yes (Death, Hospitalization, Other)
  Sender: FDA-Public Use
  Company Number: US-ACTELION-A-US2019-193743

PATIENT
  Age: 6 Year
  Sex: Female

DRUGS (12)
  1. TRACLEER [Suspect]
     Active Substance: BOSENTAN
     Dosage: 32.5 MG, BID
     Route: 048
  2. TRIAMCINOLONE ACETONIDE. [Concomitant]
     Active Substance: TRIAMCINOLONE ACETONIDE
     Dosage: 1% CREAM, APPLY 2-3 TIMES DAILY TO AFFECTED AREA
     Dates: start: 20150903
  3. ALBUTEROL SULFATE. [Concomitant]
     Active Substance: ALBUTEROL SULFATE
     Indication: WHEEZING
     Dosage: 2.5MG/3ML INHALED Q4-6 HRS, PRN
     Dates: start: 20180830
  4. SILDENAFIL. [Concomitant]
     Active Substance: SILDENAFIL
     Dosage: 2.5 MG/ML: USE 6ML (15MG) Q8HRS
     Dates: start: 20190607
  5. POTASSIUM CHLORIDE. [Concomitant]
     Active Substance: POTASSIUM CHLORIDE
     Dosage: 20 MEQ/15ML: GIVE 4.5ML BID
     Dates: start: 20171025
  6. OXYGEN. [Concomitant]
     Active Substance: OXYGEN
     Dosage: UNK, QPM
  7. QVAR [Concomitant]
     Active Substance: BECLOMETHASONE DIPROPIONATE
     Dosage: 40 MCG, 2 PUFFS, BID
     Route: 055
     Dates: start: 20180618
  8. LASIX [Concomitant]
     Active Substance: FUROSEMIDE
     Dosage: 10 MG/ML: GIVE 1ML BID
     Route: 048
     Dates: start: 20171101
  9. OXYGEN. [Concomitant]
     Active Substance: OXYGEN
     Dosage: 3-4 L/MIN
  10. TRACLEER [Suspect]
     Active Substance: BOSENTAN
     Indication: PULMONARY ARTERIAL HYPERTENSION
     Dosage: 32 MG, BID
     Route: 048
  11. DIURIL [Concomitant]
     Active Substance: CHLOROTHIAZIDE
     Dosage: 250 MG/5ML: TAKE 8ML VIA G-TUBE BID
     Dates: start: 20170510
  12. SODIUM CHLORIDE. [Concomitant]
     Active Substance: SODIUM CHLORIDE
     Dosage: 0.9% USE 1 VIAL VIA NEB QID, PRN
     Dates: start: 20151209

REACTIONS (49)
  - Hypochloraemia [Not Recovered/Not Resolved]
  - Rhonchi [Unknown]
  - Haemoglobin decreased [Unknown]
  - Platelet count decreased [Unknown]
  - Foot deformity [Unknown]
  - Chronic respiratory failure [Unknown]
  - Oxygen saturation decreased [Unknown]
  - Rales [Unknown]
  - Acute respiratory failure [Unknown]
  - Transplant evaluation [Unknown]
  - Cardiac failure congestive [Fatal]
  - Hypokalaemia [Recovered/Resolved]
  - Lung infiltration [Unknown]
  - Rhinorrhoea [Unknown]
  - Blood urea increased [Not Recovered/Not Resolved]
  - Protein total decreased [Unknown]
  - Blood glucose increased [Recovered/Resolved]
  - Hyperkalaemia [Unknown]
  - Constipation [Unknown]
  - Tachypnoea [Unknown]
  - Hypotension [Unknown]
  - Hepatomegaly [Unknown]
  - Hypoxia [Unknown]
  - Carbon dioxide increased [Unknown]
  - Blood glucose decreased [Unknown]
  - Pulmonary hypertension [Fatal]
  - Procalcitonin increased [Unknown]
  - White blood cell count decreased [Unknown]
  - Brain natriuretic peptide increased [Unknown]
  - Blood bilirubin increased [Not Recovered/Not Resolved]
  - Blood creatinine increased [Unknown]
  - Weight decreased [Unknown]
  - Haematocrit decreased [Unknown]
  - Eczema [Unknown]
  - Disease progression [Fatal]
  - Acute myeloid leukaemia [Unknown]
  - Lower respiratory tract infection [Unknown]
  - Oxygen consumption increased [Unknown]
  - Condition aggravated [Unknown]
  - Hyponatraemia [Not Recovered/Not Resolved]
  - Increased upper airway secretion [Unknown]
  - Aspartate aminotransferase increased [Not Recovered/Not Resolved]
  - Respiratory tract infection viral [Fatal]
  - Parainfluenzae virus infection [Unknown]
  - Pyrexia [Unknown]
  - Respiratory distress [Unknown]
  - Blood calcium decreased [Recovered/Resolved]
  - Blood albumin decreased [Unknown]
  - Alanine aminotransferase increased [Not Recovered/Not Resolved]

NARRATIVE: CASE EVENT DATE: 20190715
